FAERS Safety Report 15331502 (Version 4)
Quarter: 2020Q4

REPORT INFORMATION
  Report Type: Report from Study
  Country: US (occurrence: US)
  Receive Date: 20180829
  Receipt Date: 20201118
  Transmission Date: 20210113
  Serious: Yes (Other)
  Sender: FDA-Public Use
  Company Number: US-TAKEDA-2018TUS025703

PATIENT
  Age: 65 Year
  Sex: Male

DRUGS (9)
  1. ACYCLOVIR                          /00587301/ [Concomitant]
     Active Substance: ACYCLOVIR
     Dosage: UNK
     Route: 065
  2. IBUPROFEN. [Concomitant]
     Active Substance: IBUPROFEN
     Dosage: UNK
     Route: 065
  3. PONATINIB [Suspect]
     Active Substance: PONATINIB
     Dosage: 15 MILLIGRAM, QD
     Route: 048
  4. POTASSIUM [Concomitant]
     Active Substance: POTASSIUM
     Dosage: UNK
     Route: 065
  5. BACTRIM [Concomitant]
     Active Substance: SULFAMETHOXAZOLE\TRIMETHOPRIM
     Dosage: UNK
     Route: 065
  6. LOSARTAN. [Concomitant]
     Active Substance: LOSARTAN
     Dosage: UNK
     Route: 065
  7. LEXAPRO [Concomitant]
     Active Substance: ESCITALOPRAM OXALATE
     Dosage: UNK
     Route: 065
  8. PONATINIB [Suspect]
     Active Substance: PONATINIB
     Indication: ACUTE LYMPHOCYTIC LEUKAEMIA
     Dosage: 30 MILLIGRAM, QD
     Route: 048
     Dates: start: 201807
  9. XANAX [Concomitant]
     Active Substance: ALPRAZOLAM
     Dosage: UNK
     Route: 065

REACTIONS (31)
  - Tendon disorder [Unknown]
  - Blood pressure increased [Unknown]
  - Abdominal distension [Unknown]
  - Back pain [Unknown]
  - Arthralgia [Unknown]
  - Hernia repair [Unknown]
  - Nasopharyngitis [Unknown]
  - Chest pain [Unknown]
  - Cataract [Unknown]
  - Feeling of body temperature change [Unknown]
  - Dry eye [Unknown]
  - Asthenia [Unknown]
  - Pain in extremity [Unknown]
  - Headache [Unknown]
  - Neuropathy peripheral [Unknown]
  - Renal cyst [Unknown]
  - Weight increased [Unknown]
  - Rash maculo-papular [Unknown]
  - Quality of life decreased [Unknown]
  - Fall [Unknown]
  - Vision blurred [Unknown]
  - Fatigue [Not Recovered/Not Resolved]
  - Ejection fraction decreased [Unknown]
  - Abdominal pain upper [Unknown]
  - Chest discomfort [Unknown]
  - Feeling abnormal [Unknown]
  - Arthritis [Unknown]
  - Dizziness [Unknown]
  - Cardiac disorder [Unknown]
  - Pain [Unknown]
  - White blood cell count decreased [Unknown]

NARRATIVE: CASE EVENT DATE: 20190712
